FAERS Safety Report 10074928 (Version 1)
Quarter: 2014Q2

REPORT INFORMATION
  Report Type: Spontaneous
  Country: ES (occurrence: ES)
  Receive Date: 20140414
  Receipt Date: 20140414
  Transmission Date: 20141212
  Serious: Yes (Life-Threatening, Hospitalization)
  Sender: FDA-Public Use
  Company Number: ES-ROCHE-1381871

PATIENT
  Age: 50 Year
  Sex: Male

DRUGS (2)
  1. MABTHERA [Suspect]
     Indication: FIBRILLARY GLOMERULONEPHRITIS
     Dosage: 500 MG CONCENTRATE FOR SOLUTION FOR INFUSION, 1 VIAL OF 50 ML
     Route: 042
     Dates: start: 20121107
  2. MABTHERA [Suspect]
     Dosage: 500 MG CONCENTRATE FOR SOLUTION FOR INFUSION, 1 VIAL OF 50 ML
     Route: 042
     Dates: start: 20121121

REACTIONS (1)
  - Pneumonitis [Recovered/Resolved]
